FAERS Safety Report 4845765-X (Version None)
Quarter: 2005Q4

REPORT INFORMATION
  Report Type: 
  Country: None (occurrence: None)
  Receive Date: 20051201
  Receipt Date: 20051116
  Transmission Date: 20060501
  Serious: Yes (Hospitalization, Other)
  Sender: FDA-Public Use
  Company Number: USA-2004-0015732

PATIENT
  Age: 68 Year
  Sex: Female

DRUGS (22)
  1. OXYCONTIN [Suspect]
     Indication: PAIN
     Dosage: 30 MG, BID, 40 MIG BID, 20 MG, BID; ORAL, 40 MG, Q12H,
     Route: 048
     Dates: start: 20011101
  2. OXYCONTIN [Suspect]
     Indication: PAIN
     Dosage: 30 MG, BID, 40 MIG BID, 20 MG, BID; ORAL, 40 MG, Q12H,
     Route: 048
     Dates: start: 20020601
  3. NORCO [Concomitant]
  4. PAXIL [Concomitant]
  5. VALIUM [Concomitant]
  6. BEXTRA [Concomitant]
  7. TRAZODONE HCL [Concomitant]
  8. NITRO (GLYCERYL TRINITRATE) [Concomitant]
  9. ATIVAN [Concomitant]
  10. FISH OIL [Concomitant]
  11. VIOXX [Concomitant]
  12. MONOPRIL [Concomitant]
  13. LEXAPRO [Concomitant]
  14. CLONAZEPAM [Concomitant]
  15. REMERON [Concomitant]
  16. BEXTRA [Concomitant]
  17. DESYREL [Concomitant]
  18. LORAZEPAM [Concomitant]
  19. SULPHAMETHOXAZOLE (SULFAMETHOXAZOLE) [Concomitant]
  20. DIAZEPAM [Concomitant]
  21. HYDROCODONE [Concomitant]
  22. LEVAQUIN [Concomitant]

REACTIONS (54)
  - ANXIETY [None]
  - ARTHRALGIA [None]
  - ARTHRITIS [None]
  - ASTHENIA [None]
  - BACK PAIN [None]
  - BACTERIAL INFECTION [None]
  - BLOOD PRESSURE INCREASED [None]
  - CARDIAC VALVE DISEASE [None]
  - CEREBRAL ATROPHY [None]
  - CHEST PAIN [None]
  - CHILLS [None]
  - DECREASED APPETITE [None]
  - DEHYDRATION [None]
  - DEPRESSED MOOD [None]
  - DEPRESSION [None]
  - DISTURBANCE IN ATTENTION [None]
  - DRUG DEPENDENCE [None]
  - DRUG WITHDRAWAL SYNDROME [None]
  - DYSPNOEA [None]
  - FEELING HOT [None]
  - FLAT AFFECT [None]
  - GROIN PAIN [None]
  - HEADACHE [None]
  - HEART RATE IRREGULAR [None]
  - HYPOAESTHESIA [None]
  - INADEQUATE ANALGESIA [None]
  - INSOMNIA [None]
  - MALAISE [None]
  - MARASMUS [None]
  - MEMORY IMPAIRMENT [None]
  - MIDDLE INSOMNIA [None]
  - NAUSEA [None]
  - NECK PAIN [None]
  - NOCTURIA [None]
  - OBSESSIVE-COMPULSIVE DISORDER [None]
  - PAIN [None]
  - PAIN IN EXTREMITY [None]
  - PALPITATIONS [None]
  - PARAESTHESIA [None]
  - PARANOIA [None]
  - PNEUMONIA [None]
  - PYREXIA [None]
  - RHONCHI [None]
  - SACROILIITIS [None]
  - SPINAL OSTEOARTHRITIS [None]
  - SPUTUM CULTURE POSITIVE [None]
  - STREPTOCOCCAL INFECTION [None]
  - STRESS INCONTINENCE [None]
  - SUICIDAL IDEATION [None]
  - ULCER [None]
  - VIRAL INFECTION [None]
  - VISUAL ACUITY REDUCED [None]
  - VOMITING [None]
  - WEIGHT DECREASED [None]
